FAERS Safety Report 16371348 (Version 1)
Quarter: 2019Q3

REPORT INFORMATION
  Report Type: Spontaneous
  Country: US (occurrence: US)
  Receive Date: 20190529
  Receipt Date: 20190529
  Transmission Date: 20191004
  Serious: No
  Sender: FDA-Public Use
  Company Number: None

PATIENT
  Age: 93 Year
  Sex: Female
  Weight: 51.6 kg

DRUGS (1)
  1. CAPACITABINE [Suspect]
     Active Substance: CAPECITABINE
     Indication: RECTAL CANCER
     Dates: start: 20190325, end: 20190403

REACTIONS (1)
  - Hyponatraemia [None]

NARRATIVE: CASE EVENT DATE: 20190329
